FAERS Safety Report 16448429 (Version 1)
Quarter: 2019Q2

REPORT INFORMATION
  Report Type: Other
  Country: PT (occurrence: PT)
  Receive Date: 20190619
  Receipt Date: 20190619
  Transmission Date: 20190711
  Serious: Yes (Hospitalization)
  Sender: FDA-Public Use
  Company Number: PT-CELLTRION INC.-2019PT021781

PATIENT

DRUGS (26)
  1. PERTUZUMAB. [Suspect]
     Active Substance: PERTUZUMAB
     Indication: HER-2 POSITIVE BREAST CANCER
     Dosage: 840 MG (ON DAY 1 OR DAY 2 OF EACH SUBSEQUENT 3 WEEK CYCLE. LOADING DOSE ON 29/JAN/2019, SHE RECEIVED
     Route: 042
     Dates: start: 20140129
  2. ZOLEDRONIC ACID [Concomitant]
     Active Substance: ZOLEDRONIC ACID
     Indication: METASTASES TO BONE
     Dosage: 4 MG, MONTHLY
     Route: 065
     Dates: start: 20140403, end: 20151217
  3. METOCLOPRAMIDE. [Concomitant]
     Active Substance: METOCLOPRAMIDE
     Dosage: 10 MG
     Route: 065
     Dates: start: 20150513
  4. PARACETAMOL [Concomitant]
     Active Substance: ACETAMINOPHEN
     Indication: PAIN
     Dosage: 1 G
     Route: 065
     Dates: start: 20140416
  5. ALPRAZOLAM. [Concomitant]
     Active Substance: ALPRAZOLAM
     Dosage: 1 MG
     Route: 065
     Dates: start: 2007
  6. BRUFEN [IBUPROFEN] [Concomitant]
     Active Substance: IBUPROFEN
     Dosage: 1200 MG
     Route: 065
     Dates: start: 20170829
  7. TRASTUZUMAB (UNKNOWN) [Suspect]
     Active Substance: TRASTUZUMAB
     Dosage: 8 MG/KG EVERY 3 WEEKS, LOADING DOSE: ON DAY 1 OR DAY 2 OF CYCLE 1 ON 29/JAN/2019, SHE RECEIVED MOST
     Route: 042
     Dates: start: 20140130
  8. PERTUZUMAB. [Suspect]
     Active Substance: PERTUZUMAB
     Dosage: 420 MG EVERY 3 WEEKS, ON DAY 1 OR DAY 2 OF EACH SUBSEQUENT 3-WEEK CYCLE. MAINTAINANCE DOSE ON 29/JAN
     Route: 042
  9. LISINOPRIL HIDROCLOROTIAZIDA [Concomitant]
     Active Substance: HYDROCHLOROTHIAZIDE\LISINOPRIL
     Dosage: UNK
     Route: 065
     Dates: start: 2007, end: 201705
  10. DICLOFENAC [Concomitant]
     Active Substance: DICLOFENAC
     Dosage: 100 MG
     Route: 065
     Dates: start: 2013
  11. LISINOPRIL HIDROCLOROTIAZIDA [Concomitant]
     Active Substance: HYDROCHLOROTHIAZIDE\LISINOPRIL
     Dosage: 10+6.25 MG
     Route: 065
     Dates: start: 2013, end: 20170509
  12. ATORVASTATIN [Concomitant]
     Active Substance: ATORVASTATIN
     Dosage: 10 MG
     Route: 065
     Dates: start: 2007
  13. PARACETAMOL [Concomitant]
     Active Substance: ACETAMINOPHEN
     Dosage: 1 G
     Route: 065
     Dates: start: 20170827, end: 20170828
  14. PARACETAMOL [Concomitant]
     Active Substance: ACETAMINOPHEN
     Dosage: AS REQUIRED
     Route: 065
     Dates: start: 20140219, end: 20140423
  15. ZOLEDRONIC ACID [Concomitant]
     Active Substance: ZOLEDRONIC ACID
     Dosage: 4 MG, EVERY 3 MONTHS
     Route: 065
     Dates: start: 20160317
  16. CORDARONE [Concomitant]
     Active Substance: AMIODARONE HYDROCHLORIDE
     Dosage: 100 MG
     Route: 065
     Dates: start: 20170409
  17. CORDARONE [Concomitant]
     Active Substance: AMIODARONE HYDROCHLORIDE
     Dosage: 200 MG
     Route: 065
     Dates: start: 2013, end: 20170409
  18. TRASTUZUMAB (UNKNOWN) [Suspect]
     Active Substance: TRASTUZUMAB
     Indication: HER-2 POSITIVE BREAST CANCER
     Dosage: 588 MG EVERY 3 WEEKS, MAINTAINANCE DOSE: ON DAY 1 OR DAY 2 OF EACH SUBSEQUENT 3-WEEK CYCLE ON 29/JAN
     Route: 042
  19. METOCLOPRAMIDE. [Concomitant]
     Active Substance: METOCLOPRAMIDE
     Dosage: 10 MG
     Route: 065
     Dates: start: 20140423, end: 20140514
  20. PARACETAMOL [Concomitant]
     Active Substance: ACETAMINOPHEN
     Dosage: 1500 MG
     Route: 065
     Dates: start: 20181217, end: 20181222
  21. OMEPRAZOLE. [Concomitant]
     Active Substance: OMEPRAZOLE
     Dosage: 20 MG
     Route: 065
     Dates: start: 20150513
  22. DICLOFENAC [Concomitant]
     Active Substance: DICLOFENAC
     Dosage: 50 MG
     Route: 065
     Dates: start: 20181225
  23. FURADANTINE MC [Concomitant]
     Dosage: 100 MG
     Route: 065
     Dates: start: 20181231
  24. AMLODIPINE [Concomitant]
     Active Substance: AMLODIPINE BESYLATE
     Dosage: 10 MG
     Route: 065
     Dates: start: 201807
  25. PERINDOPRIL [Concomitant]
     Active Substance: PERINDOPRIL
     Dosage: 5 MG
     Route: 065
     Dates: start: 201808
  26. EUTHYROX [Concomitant]
     Active Substance: LEVOTHYROXINE SODIUM
     Dosage: 75 MICROGRAM
     Route: 065
     Dates: start: 20170530

REACTIONS (1)
  - Atrial fibrillation [Recovered/Resolved]

NARRATIVE: CASE EVENT DATE: 20190216
